FAERS Safety Report 7708307-7 (Version None)
Quarter: 2011Q3

REPORT INFORMATION
  Report Type: 
  Country: None (occurrence: None)
  Receive Date: 20110825
  Receipt Date: 20110817
  Transmission Date: 20111222
  Serious: Yes (Other)
  Sender: FDA-Public Use
  Company Number: US-BIOGENIDEC-2010BI004938

PATIENT
  Age: 51 Year
  Sex: Male
  Weight: 122 kg

DRUGS (1)
  1. AVONEX [Suspect]
     Indication: MULTIPLE SCLEROSIS
     Route: 030
     Dates: start: 20071007, end: 20091015

REACTIONS (5)
  - SUICIDE ATTEMPT [None]
  - INTERVERTEBRAL DISC PROTRUSION [None]
  - INCONTINENCE [None]
  - DIARRHOEA [None]
  - DRUG INEFFECTIVE [None]
